FAERS Safety Report 19464219 (Version 6)
Quarter: 2021Q3

REPORT INFORMATION
  Report Type: Spontaneous
  Country: US (occurrence: US)
  Receive Date: 20210626
  Receipt Date: 20210814
  Transmission Date: 20211014
  Serious: Yes (Other)
  Sender: FDA-Public Use
  Company Number: US-UNITED THERAPEUTICS-UNT-2021-010503

PATIENT
  Age: 81 Year
  Sex: Female
  Weight: 77.1 kg

DRUGS (7)
  1. TYVASO [Suspect]
     Active Substance: TREPROSTINIL
     Indication: PULMONARY ARTERIAL HYPERTENSION
     Dosage: UNK
     Dates: start: 20121015
  2. TYVASO [Suspect]
     Active Substance: TREPROSTINIL
     Dosage: 60?120 ?G, QID
  3. TYVASO [Suspect]
     Active Substance: TREPROSTINIL
     Dosage: 60?120 ?G, QID
  4. TADALAFIL. [Suspect]
     Active Substance: TADALAFIL
     Indication: PRODUCT USED FOR UNKNOWN INDICATION
     Dosage: UNK, QD (ONE TABLET DAILY)
     Route: 065
  5. TYVASO [Suspect]
     Active Substance: TREPROSTINIL
     Dosage: 18?54 ?G, QID
  6. TYVASO [Suspect]
     Active Substance: TREPROSTINIL
     Dosage: 18?54 ?G, QID
  7. TADALAFIL. [Suspect]
     Active Substance: TADALAFIL
     Dosage: UNK, BID (TWO TABLETS DAILY)
     Route: 065

REACTIONS (19)
  - Dyspnoea [Unknown]
  - Fatigue [Unknown]
  - Myalgia [Unknown]
  - Migraine [Unknown]
  - Weight increased [Unknown]
  - Constipation [Unknown]
  - Pain in extremity [Unknown]
  - Back pain [Unknown]
  - Headache [Unknown]
  - Off label use [Recovered/Resolved]
  - Cough [Unknown]
  - Restless legs syndrome [Unknown]
  - Brain neoplasm [Unknown]
  - Pain [Unknown]
  - Abdominal discomfort [Unknown]
  - Nasal congestion [Unknown]
  - Dyspepsia [Unknown]
  - Product dose omission issue [Unknown]
  - Arthralgia [Unknown]

NARRATIVE: CASE EVENT DATE: 202106
